FAERS Safety Report 9523594 (Version 1)
Quarter: 2013Q3

REPORT INFORMATION
  Report Type: Spontaneous
  Country: JP (occurrence: JP)
  Receive Date: 20130913
  Receipt Date: 20130913
  Transmission Date: 20140515
  Serious: Yes (Life-Threatening, Other)
  Sender: FDA-Public Use
  Company Number: JP-JHP PHARMACEUTICALS, LLC-JHP201300536

PATIENT
  Age: 38 Year
  Sex: Female

DRUGS (2)
  1. PITOCIN [Suspect]
     Route: 042
  2. ANESTHETICS [Concomitant]
     Indication: ANAESTHESIA PROCEDURE
     Route: 008

REACTIONS (2)
  - Myocardial ischaemia [Recovered/Resolved]
  - Maternal exposure during pregnancy [Recovered/Resolved]
